FAERS Safety Report 17082255 (Version 1)
Quarter: 2019Q4

REPORT INFORMATION
  Report Type: Spontaneous
  Country: IT (occurrence: IT)
  Receive Date: 20191127
  Receipt Date: 20191127
  Transmission Date: 20200122
  Serious: Yes (Disabling)
  Sender: FDA-Public Use
  Company Number: NVSC2019IT044762

PATIENT
  Age: 40 Year
  Sex: Male

DRUGS (2)
  1. TASIGNA [Suspect]
     Active Substance: NILOTINIB
     Indication: CHRONIC MYELOID LEUKAEMIA
     Dosage: 600 MG, QD
     Route: 048
     Dates: start: 20171007
  2. FORBEST [Concomitant]
     Active Substance: FLUNISOLIDE
     Indication: SINUSITIS
     Dosage: 1 DF, CYCLIC
     Route: 055
     Dates: start: 20070501

REACTIONS (6)
  - Vertigo [Recovered/Resolved with Sequelae]
  - Headache [Recovered/Resolved with Sequelae]
  - Rash [Recovered/Resolved with Sequelae]
  - Schwannoma [Recovered/Resolved with Sequelae]
  - Deafness [Recovered/Resolved with Sequelae]
  - Autoimmune thyroiditis [Recovered/Resolved with Sequelae]

NARRATIVE: CASE EVENT DATE: 20171008
